FAERS Safety Report 10375174 (Version 1)
Quarter: 2014Q3

REPORT INFORMATION
  Report Type: Other
  Country: US (occurrence: US)
  Receive Date: 20140811
  Receipt Date: 20140811
  Transmission Date: 20150326
  Serious: Yes (Hospitalization, Other)
  Sender: FDA-Public Use
  Company Number: US-SHIRE-US201404514

PATIENT
  Age: 68 Year
  Sex: Female

DRUGS (2)
  1. CINRYZE [Suspect]
     Active Substance: HUMAN C1-ESTERASE INHIBITOR
     Indication: PROPHYLAXIS
  2. CINRYZE [Suspect]
     Active Substance: HUMAN C1-ESTERASE INHIBITOR
     Indication: HEREDITARY ANGIOEDEMA
     Dosage: 1000 UNITS, OTHER (EVERY OTHER DAY)
     Route: 042
     Dates: start: 20140625

REACTIONS (3)
  - Inappropriate schedule of drug administration [Unknown]
  - Catheter site haemorrhage [Unknown]
  - Local swelling [Unknown]

NARRATIVE: CASE EVENT DATE: 20140721
